FAERS Safety Report 4742285-8 (Version None)
Quarter: 2005Q3

REPORT INFORMATION
  Report Type: 
  Country: None (occurrence: None)
  Receive Date: 20050811
  Receipt Date: 20050404
  Transmission Date: 20060218
  Serious: Yes (Hospitalization)
  Sender: FDA-Public Use
  Company Number: US-GLAXOSMITHKLINE-A0552574A

PATIENT
  Age: 47 Year
  Sex: Female

DRUGS (4)
  1. PAXIL CR [Suspect]
     Indication: DEPRESSION
     Dosage: 25MG PER DAY
     Route: 048
     Dates: end: 20050301
  2. ALPRAZOLAM [Concomitant]
  3. TYLENOL PM [Concomitant]
  4. UNKNOWN ANTIBIOTIC [Concomitant]
     Indication: INFECTION
     Route: 048
     Dates: start: 20050101

REACTIONS (7)
  - AMNESIA [None]
  - HYPERHIDROSIS [None]
  - NAUSEA [None]
  - PHOTOSENSITIVITY REACTION [None]
  - TINNITUS [None]
  - VERTIGO [None]
  - VOMITING [None]
